FAERS Safety Report 8821240 (Version 1)
Quarter: 2012Q4

REPORT INFORMATION
  Report Type: 
  Country: US (occurrence: US)
  Receive Date: 20121002
  Receipt Date: 20121002
  Transmission Date: 20130627
  Serious: No
  Sender: FDA-Public Use
  Company Number: US-ASTRAZENECA-2012SE72957

PATIENT
  Age: 48 Year
  Sex: Female

DRUGS (3)
  1. SEROQUEL XR [Suspect]
     Indication: DEPRESSION
     Route: 048
  2. SEROQUEL XR [Suspect]
     Indication: BIPOLAR DISORDER
     Route: 048
  3. ABILIFY [Suspect]
     Route: 065

REACTIONS (4)
  - Psychosomatic disease [Unknown]
  - Condition aggravated [Unknown]
  - Drug dose omission [Unknown]
  - Drug ineffective [Unknown]
